FAERS Safety Report 6846023-4 (Version None)
Quarter: 2010Q3

REPORT INFORMATION
  Report Type: 
  Country: None (occurrence: None)
  Receive Date: 20100715
  Receipt Date: 20070903
  Transmission Date: 20110219
  Serious: No
  Sender: FDA-Public Use
  Company Number: US-PFIZER INC-2007073919

PATIENT
  Sex: Female
  Weight: 56.8 kg

DRUGS (5)
  1. CHANTIX [Suspect]
     Indication: SMOKING CESSATION THERAPY
     Route: 048
     Dates: start: 20070830
  2. PRILOSEC [Concomitant]
     Indication: GASTROOESOPHAGEAL REFLUX DISEASE
  3. SOMA [Concomitant]
  4. OXYCODONE HCL [Concomitant]
  5. XANAX [Concomitant]
     Indication: SLEEP DISORDER

REACTIONS (1)
  - ABDOMINAL PAIN UPPER [None]
